FAERS Safety Report 14165749 (Version 15)
Quarter: 2018Q3

REPORT INFORMATION
  Report Type: Spontaneous
  Country: GB (occurrence: GB)
  Receive Date: 20171107
  Receipt Date: 20180723
  Transmission Date: 20181010
  Serious: Yes (Other)
  Sender: FDA-Public Use
  Company Number: GB-009507513-1711GBR002277

PATIENT
  Age: 17 Year
  Sex: Female

DRUGS (43)
  1. IRINOTECAN HYDROCHLORIDE. [Suspect]
     Active Substance: IRINOTECAN HYDROCHLORIDE
     Indication: DESMOPLASTIC SMALL ROUND CELL TUMOUR
     Dosage: 3 LINES OF CHEMOTHERAPY
     Route: 065
  2. IRINOTECAN HYDROCHLORIDE. [Suspect]
     Active Substance: IRINOTECAN HYDROCHLORIDE
     Indication: OFF LABEL USE
  3. VINCRISTINE [Suspect]
     Active Substance: VINCRISTINE
     Dosage: THREE LINES OF CHEMOTHERAPY
  4. GEMCITABINE [Suspect]
     Active Substance: GEMCITABINE\GEMCITABINE HYDROCHLORIDE
     Indication: MALIGNANT NEOPLASM PROGRESSION
     Dosage: 3 LINES OF CHEMOTHERAPY
     Route: 065
  5. DOXORUBICIN [Suspect]
     Active Substance: DOXORUBICIN
     Dosage: 1 UNIT, 4 CYCLES ; CYCLICAL
     Route: 065
  6. DOCETAXEL. [Suspect]
     Active Substance: DOCETAXEL
     Indication: MALIGNANT NEOPLASM PROGRESSION
     Dosage: 3 LINES OF CHEMOTHERAPY
     Route: 065
  7. DACTINOMYCIN [Concomitant]
     Active Substance: DACTINOMYCIN
     Indication: DESMOPLASTIC SMALL ROUND CELL TUMOUR
     Dosage: 4 CYCLES ; CYCLICAL
     Route: 042
  8. PAZOPANIB [Concomitant]
     Active Substance: PAZOPANIB
     Indication: PRODUCT USED FOR UNKNOWN INDICATION
  9. VINORELBINE TARTRATE. [Suspect]
     Active Substance: VINORELBINE TARTRATE
     Dosage: 1 UNIT,4 CYCLES, MAINTENANCE THERAPY ; CYCLICAL
     Route: 065
  10. VINCRISTINE [Suspect]
     Active Substance: VINCRISTINE
     Indication: DESMOPLASTIC SMALL ROUND CELL TUMOUR
     Dosage: THREE LINES OF CHEMOTHERAPY
     Route: 042
  11. VINCRISTINE [Suspect]
     Active Substance: VINCRISTINE
     Dosage: 1 UNIT,4 CYCLES ; CYCLICAL
     Route: 042
  12. CYCLOPHOSPHAMIDE. [Suspect]
     Active Substance: CYCLOPHOSPHAMIDE
     Indication: DESMOPLASTIC SMALL ROUND CELL TUMOUR
     Dosage: 4 CYCLES, MAINTENANCE THERAPY ; CYCLICAL
     Route: 065
  13. GEMCITABINE [Suspect]
     Active Substance: GEMCITABINE\GEMCITABINE HYDROCHLORIDE
     Dosage: 3 LINES OF CHEMOTHERAPY
     Route: 065
  14. DOXORUBICIN [Suspect]
     Active Substance: DOXORUBICIN
     Indication: DESMOPLASTIC SMALL ROUND CELL TUMOUR
     Dosage: 1 UNIT, 4 CYCLES ; CYCLICAL
     Route: 065
  15. DOCETAXEL. [Suspect]
     Active Substance: DOCETAXEL
     Indication: DESMOPLASTIC SMALL ROUND CELL TUMOUR
     Dosage: THREE LINES OF CHEMOTHERAPY
     Route: 065
  16. DACTINOMYCIN [Concomitant]
     Active Substance: DACTINOMYCIN
     Dosage: IVA 5 CYCLES ; CYCLICAL
     Route: 042
  17. VINCRISTINE [Suspect]
     Active Substance: VINCRISTINE
     Indication: MALIGNANT NEOPLASM PROGRESSION
     Dosage: 1 UNIT, FIVE CYCLES
     Route: 042
  18. VINCRISTINE [Suspect]
     Active Substance: VINCRISTINE
     Dosage: 1 UNIT, 4 CYCLES ; CYCLICAL
     Route: 042
  19. VINCRISTINE [Suspect]
     Active Substance: VINCRISTINE
     Dosage: 1 UNIT,IVA 5 CYCLES ; CYCLICAL
     Route: 042
  20. GEMCITABINE [Suspect]
     Active Substance: GEMCITABINE\GEMCITABINE HYDROCHLORIDE
     Indication: DESMOPLASTIC SMALL ROUND CELL TUMOUR
     Dosage: 3 LINES OF CHEMOTHERAPY
     Route: 065
  21. CYCLIZINE [Suspect]
     Active Substance: CYCLIZINE
     Indication: PRODUCT USED FOR UNKNOWN INDICATION
     Dosage: 50 MG, PRN
     Route: 065
  22. DOCETAXEL. [Suspect]
     Active Substance: DOCETAXEL
     Dosage: THREE LINES OF CHEMOTHERAPY
  23. ONDANSETRON [Concomitant]
     Active Substance: ONDANSETRON
     Indication: PRODUCT USED FOR UNKNOWN INDICATION
     Dosage: 8 MG, PRN; AS NECESSARY
     Route: 065
  24. ONDANSETRON [Concomitant]
     Active Substance: ONDANSETRON
     Dosage: 8 MG, AS REQ^D
     Route: 065
  25. VINORELBINE TARTRATE. [Suspect]
     Active Substance: VINORELBINE TARTRATE
     Indication: DESMOPLASTIC SMALL ROUND CELL TUMOUR
     Dosage: 1 UNIT,4 CYCLES, CYCLICAL
     Route: 065
  26. CYCLOPHOSPHAMIDE. [Suspect]
     Active Substance: CYCLOPHOSPHAMIDE
     Indication: DESMOPLASTIC SMALL ROUND CELL TUMOUR
     Dosage: 3 LINES OF CHEMOTHERAPY, 4 CYCLES, MAINTENANCE THERAPY ; CYCLICAL
     Route: 065
  27. CYCLOPHOSPHAMIDE. [Suspect]
     Active Substance: CYCLOPHOSPHAMIDE
     Dosage: UNK
     Route: 065
  28. SEPTRIN [Suspect]
     Active Substance: SULFAMETHOXAZOLE\TRIMETHOPRIM
     Indication: PRODUCT USED FOR UNKNOWN INDICATION
     Dosage: 480 MG, BID, SATURDAY AND SUNDAY
     Route: 065
  29. TOPOTECAN [Suspect]
     Active Substance: TOPOTECAN HYDROCHLORIDE
     Indication: DESMOPLASTIC SMALL ROUND CELL TUMOUR
     Dosage: 3 LINES OF CHEMOTHERAPY
     Route: 065
  30. TOPOTECAN [Suspect]
     Active Substance: TOPOTECAN HYDROCHLORIDE
     Indication: MALIGNANT NEOPLASM PROGRESSION
     Dosage: 3 LINES OF CHEMOTHERAPY
     Route: 065
  31. IFOSFAMIDE. [Suspect]
     Active Substance: IFOSFAMIDE
     Dosage: 1 UNIT,IVA 5 CYCLES ; CYCLICAL
     Route: 065
  32. IRINOTECAN HYDROCHLORIDE. [Suspect]
     Active Substance: IRINOTECAN HYDROCHLORIDE
     Indication: MALIGNANT NEOPLASM PROGRESSION
  33. VINCRISTINE [Suspect]
     Active Substance: VINCRISTINE
     Dosage: THREE LINES OF CHEMOTHERAPY
     Route: 042
  34. IFOSFAMIDE. [Suspect]
     Active Substance: IFOSFAMIDE
     Dosage: 1 UNIT,IVA 5 CYCLES ; CYCLICAL
     Route: 065
  35. TEMOZOLOMIDE. [Suspect]
     Active Substance: TEMOZOLOMIDE
     Indication: DESMOPLASTIC SMALL ROUND CELL TUMOUR
     Dosage: UNK
     Route: 065
  36. VINCRISTINE [Suspect]
     Active Substance: VINCRISTINE
     Dosage: THREE LINES OF CHEMOTHERAPY
     Route: 042
  37. CYCLOPHOSPHAMIDE. [Suspect]
     Active Substance: CYCLOPHOSPHAMIDE
     Indication: MALIGNANT NEOPLASM PROGRESSION
     Dosage: 3 LINES OF CHEMOTHERAPY, 4 CYCLES, MAINTENANCE THERAPY ; CYCLICAL
     Route: 065
  38. IFOSFAMIDE. [Suspect]
     Active Substance: IFOSFAMIDE
     Indication: DESMOPLASTIC SMALL ROUND CELL TUMOUR
     Dosage: 4 CYCLES
  39. MELATONIN [Concomitant]
     Active Substance: MELATONIN
     Indication: PRODUCT USED FOR UNKNOWN INDICATION
     Dosage: 6 MG, QD
     Route: 065
  40. TEMOZOLOMIDE. [Suspect]
     Active Substance: TEMOZOLOMIDE
     Indication: MALIGNANT NEOPLASM PROGRESSION
     Dosage: 3 LINES OF CHEMOTHERAPY
     Route: 065
  41. VINCRISTINE [Suspect]
     Active Substance: VINCRISTINE
     Dosage: THREE LINES OF CHEMOTHERAPY
     Route: 065
  42. VINCRISTINE [Suspect]
     Active Substance: VINCRISTINE
     Dosage: 1 UNIT, FIVE CYCLES
  43. IFOSFAMIDE. [Suspect]
     Active Substance: IFOSFAMIDE
     Dosage: 4 CYCLES ; CYCLICAL
     Route: 065

REACTIONS (9)
  - Malignant neoplasm progression [Unknown]
  - Metastases to peritoneum [Unknown]
  - Ascites [Recovering/Resolving]
  - Drug effect incomplete [Unknown]
  - Metastases to liver [Unknown]
  - Desmoplastic small round cell tumour [Unknown]
  - Drug ineffective [Unknown]
  - Metastases to lymph nodes [Unknown]
  - Off label use [Unknown]

NARRATIVE: CASE EVENT DATE: 2017
